FAERS Safety Report 8988391 (Version 1)
Quarter: 2012Q4

REPORT INFORMATION
  Report Type: Spontaneous
  Country: US (occurrence: None)
  Receive Date: 20121220
  Receipt Date: 20121220
  Transmission Date: 20130627
  Serious: No
  Sender: FDA-Public Use
  Company Number: None

PATIENT
  Age: 46 Year
  Sex: Male

DRUGS (1)
  1. COPAXONE 20MG TEVA [Suspect]
     Indication: MULTIPLE SCLEROSIS
     Dosage: 20mg daily sq
     Route: 058
     Dates: start: 20121017, end: 20121212

REACTIONS (6)
  - Dizziness [None]
  - Fall [None]
  - Fatigue [None]
  - Multiple sclerosis [None]
  - Ataxia [None]
  - Eye disorder [None]
